FAERS Safety Report 11778698 (Version 1)
Quarter: 2015Q4

REPORT INFORMATION
  Report Type: Spontaneous
  Country: US (occurrence: US)
  Receive Date: 20151125
  Receipt Date: 20151125
  Transmission Date: 20160304
  Serious: Yes (Congenital Anomaly, Other)
  Sender: FDA-Public Use
  Company Number: US-BAXTER-2015BAX062792

PATIENT
  Age: 12 Year
  Sex: Male
  Weight: 35 kg

DRUGS (6)
  1. FLUDARABINE [Suspect]
     Active Substance: FLUDARABINE PHOSPHATE
     Indication: BONE MARROW CONDITIONING REGIMEN
     Dosage: DAY -6 THROUGH -2
     Route: 065
     Dates: start: 20140711
  2. CYCLOPHOSPHAMIDE FOR INJECTION, USP [Suspect]
     Active Substance: CYCLOPHOSPHAMIDE
     Indication: CHEMOTHERAPY
     Dosage: DAYS 3 AND 4, POST TRANSPLANT
     Route: 065
  3. BUSULFAN [Suspect]
     Active Substance: BUSULFAN
     Indication: BONE MARROW CONDITIONING REGIMEN
     Dosage: DAY -4 AND -3, IN A SINGLE DOSE OVER 2 HOURS
     Route: 042
     Dates: start: 20140711
  4. BUSULFAN [Suspect]
     Active Substance: BUSULFAN
     Dosage: DAY -2, ACHIEVE A CUMULATIVE AUC OF 9024 MICROMOL*MIN, CUMULATIVE DOSE 10.4 MG/KG)
     Route: 042
  5. SIROLIMUS. [Concomitant]
     Active Substance: SIROLIMUS
     Indication: PROPHYLAXIS AGAINST GRAFT VERSUS HOST DISEASE
     Route: 065
  6. CYCLOPHOSPHAMIDE FOR INJECTION, USP [Suspect]
     Active Substance: CYCLOPHOSPHAMIDE
     Indication: BONE MARROW CONDITIONING REGIMEN
     Dosage: DAYS - 6 AND -5
     Route: 065
     Dates: start: 20140711

REACTIONS (8)
  - Febrile neutropenia [Recovered/Resolved]
  - Graft versus host disease in gastrointestinal tract [Recovered/Resolved]
  - Bacteraemia [Recovered/Resolved]
  - Rash [Recovered/Resolved]
  - Systemic candida [Recovered/Resolved]
  - Diarrhoea [Recovered/Resolved]
  - Graft versus host disease in skin [Recovered/Resolved]
  - Cytomegalovirus colitis [Recovered/Resolved]
